FAERS Safety Report 5681026-7 (Version None)
Quarter: 2008Q1

REPORT INFORMATION
  Report Type: 
  Country: None (occurrence: None)
  Receive Date: 20080325
  Receipt Date: 20080311
  Transmission Date: 20080703
  Serious: Yes (Other)
  Sender: FDA-Public Use
  Company Number: TPA2007A02038

PATIENT
  Age: 76 Year
  Sex: Male
  Weight: 102.0593 kg

DRUGS (14)
  1. ACTOPLUS MET [Suspect]
     Indication: TYPE 2 DIABETES MELLITUS
     Dosage: 15 MG/ 850 MG, 2 IN 1 D, PER ORAL
     Route: 048
     Dates: end: 20070504
  2. HUMALG INSULIN (INSULIN LISPRO) (INJECTION) [Concomitant]
  3. LANTUS INSULIN (INSULIN GLARGINE) (INJECTION) [Concomitant]
  4. AVALIDE [Concomitant]
  5. RANITIDINE HCI (RANITIDINE HYDROCHLORIDE) [Concomitant]
  6. PLAVIX [Concomitant]
  7. ZETIA [Concomitant]
  8. PRAVACHOL [Concomitant]
  9. CENTRUM (VITAMINS NOS, MINERALS NOS) [Concomitant]
  10. ASCORBIC ACID [Concomitant]
  11. VITAMIN E [Concomitant]
  12. AVODART (DUTASTERIDE) (CAPSULES) [Concomitant]
  13. ROMYCIN (ERYTHROMYCIN) [Concomitant]
  14. HYTRIN [Concomitant]

REACTIONS (3)
  - CHEST PAIN [None]
  - JOINT SWELLING [None]
  - PAIN [None]
